FAERS Safety Report 6029125-4 (Version None)
Quarter: 2009Q1

REPORT INFORMATION
  Report Type: 
  Country: None (occurrence: None)
  Receive Date: 20090106
  Receipt Date: 20081225
  Transmission Date: 20090719
  Serious: Yes (Hospitalization)
  Sender: FDA-Public Use
  Company Number: JP-EISAI MEDICAL RESEARCH-E2090-00622-SPO-JP

PATIENT
  Sex: Female

DRUGS (5)
  1. EXCEGRAN [Suspect]
     Indication: EPILEPSY
     Route: 048
     Dates: start: 20081018, end: 20081117
  2. LEXOTAN [Concomitant]
     Indication: EPILEPSY
     Route: 048
     Dates: start: 20070101, end: 20081018
  3. LEXOTAN [Concomitant]
     Route: 048
     Dates: start: 20081117
  4. SELENICA-R [Concomitant]
     Indication: EPILEPSY
     Route: 048
     Dates: start: 20070101, end: 20081018
  5. SELENICA-R [Concomitant]
     Route: 048
     Dates: start: 20081117

REACTIONS (1)
  - DRUG RASH WITH EOSINOPHILIA AND SYSTEMIC SYMPTOMS [None]
